FAERS Safety Report 4652623-2 (Version None)
Quarter: 2005Q2

REPORT INFORMATION
  Report Type: 
  Country: None (occurrence: None)
  Receive Date: 20050502
  Receipt Date: 20050303
  Transmission Date: 20051028
  Serious: Yes (Hospitalization)
  Sender: FDA-Public Use
  Company Number: 800296

PATIENT
  Sex: Male

DRUGS (1)
  1. DIANEAL PD-2 W/ DEXTROSE 2.5% IN PLASTIC CONTAINER [Suspect]
     Indication: RENAL FAILURE CHRONIC
     Dosage: 2000 ML; QID; INTRAPERITONEAL
     Route: 033
     Dates: start: 20050201

REACTIONS (3)
  - DEVICE FAILURE [None]
  - PERITONITIS [None]
  - WRONG TECHNIQUE IN DRUG USAGE PROCESS [None]
